FAERS Safety Report 5662650-4 (Version None)
Quarter: 2008Q1

REPORT INFORMATION
  Report Type: 
  Country: None (occurrence: None)
  Receive Date: 20080313
  Receipt Date: 20080304
  Transmission Date: 20080703
  Serious: Yes (Death, Hospitalization)
  Sender: FDA-Public Use
  Company Number: PHHO2008FR02960

PATIENT
  Sex: Male
  Weight: 82 kg

DRUGS (1)
  1. NILOTINIB VS IMATINIB [Suspect]
     Indication: GASTROINTESTINAL STROMAL TUMOUR
     Dosage: 400MG
     Route: 048
     Dates: start: 20080206, end: 20080226

REACTIONS (4)
  - BREATH SOUNDS ABNORMAL [None]
  - DYSPNOEA [None]
  - OXYGEN CONSUMPTION DECREASED [None]
  - PULMONARY OEDEMA [None]
